FAERS Safety Report 24628061 (Version 1)
Quarter: 2024Q4

REPORT INFORMATION
  Report Type: Spontaneous
  Country: US (occurrence: US)
  Receive Date: 20241117
  Receipt Date: 20241117
  Transmission Date: 20250115
  Serious: Yes (Other)
  Sender: UNITED THERAPEUTICS
  Company Number: US-UNITED THERAPEUTICS-UNT-2024-036213

PATIENT
  Age: 78 Year
  Sex: Male

DRUGS (3)
  1. TYVASO DPI [Suspect]
     Active Substance: TREPROSTINIL
     Indication: Product used for unknown indication
     Dosage: UNK
  2. OFEV [Suspect]
     Active Substance: NINTEDANIB
     Indication: Idiopathic pulmonary fibrosis
     Dosage: 300 MG, QD
     Dates: start: 20240125
  3. OFEV [Suspect]
     Active Substance: NINTEDANIB
     Dosage: UNK

REACTIONS (26)
  - Asphyxia [Unknown]
  - Neuropathy peripheral [Unknown]
  - Hypoacusis [Not Recovered/Not Resolved]
  - Dyspnoea [Unknown]
  - Dry mouth [Unknown]
  - Diarrhoea [Recovered/Resolved]
  - Anxiety [Unknown]
  - Dry throat [Not Recovered/Not Resolved]
  - Chest pain [Unknown]
  - Panic attack [Unknown]
  - Sinus disorder [Unknown]
  - Throat tightness [Not Recovered/Not Resolved]
  - Memory impairment [Unknown]
  - Arthritis [Unknown]
  - Mouth breathing [Unknown]
  - Dysphagia [Unknown]
  - Fatigue [Unknown]
  - Sinonasal obstruction [Unknown]
  - Faeces soft [Unknown]
  - Insomnia [Unknown]
  - Weight decreased [Unknown]
  - Feeling jittery [Unknown]
  - Cardiac disorder [Unknown]
  - Tremor [Unknown]
  - Oxygen saturation decreased [Unknown]
  - Device issue [Unknown]

NARRATIVE: CASE EVENT DATE: 20240601
